FAERS Safety Report 4581320-7 (Version None)
Quarter: 2005Q1

REPORT INFORMATION
  Report Type: 
  Country: None (occurrence: None)
  Receive Date: 20050214
  Receipt Date: 20040908
  Transmission Date: 20050727
  Serious: Yes (Life-Threatening)
  Sender: FDA-Public Use
  Company Number: US-GLAXOSMITHKLINE-A0527331A

PATIENT
  Age: 71 Year
  Sex: Female
  Weight: 77.3 kg

DRUGS (7)
  1. LAMICTAL [Suspect]
     Indication: MAJOR DEPRESSION
     Route: 048
     Dates: start: 20040112, end: 20040907
  2. XANAX [Concomitant]
     Indication: MAJOR DEPRESSION
     Dosage: 1MG TWICE PER DAY
     Route: 048
     Dates: start: 19990101
  3. ATARAX [Concomitant]
     Dosage: 50MG TWICE PER DAY
     Route: 048
     Dates: start: 19900101
  4. PAXIL CR [Concomitant]
     Indication: DEPRESSION
     Dosage: 25MG PER DAY
     Dates: start: 20020101
  5. SYNTHROID [Concomitant]
     Indication: HYPOTHYROIDISM
     Dosage: .125MG PER DAY
     Route: 048
  6. ALTACE [Concomitant]
     Indication: HYPERTENSION
     Dosage: 5MG PER DAY
     Route: 048
  7. MICROZIDE [Concomitant]
     Indication: HYPERTENSION
     Dosage: 12.5MG PER DAY
     Route: 048

REACTIONS (3)
  - RASH VESICULAR [None]
  - STOMATITIS [None]
  - URTICARIA [None]
